FAERS Safety Report 9397593 (Version 1)
Quarter: 2013Q3

REPORT INFORMATION
  Report Type: Spontaneous
  Country: US (occurrence: US)
  Receive Date: 20130712
  Receipt Date: 20130712
  Transmission Date: 20140515
  Serious: Yes (Hospitalization)
  Sender: FDA-Public Use
  Company Number: US-B.I. PHARMACEUTICALS,INC./RIDGEFIELD-2013-BI-19846BP

PATIENT
  Age: 80 Year
  Sex: Female
  Weight: 82 kg

DRUGS (2)
  1. SPIRIVA [Suspect]
     Indication: EMPHYSEMA
     Dosage: 18 MCG
     Route: 055
     Dates: start: 2010
  2. NEBULIZER [Concomitant]
     Indication: COUGH
     Route: 055
     Dates: start: 201305

REACTIONS (3)
  - Arthralgia [Recovered/Resolved]
  - Macular degeneration [Not Recovered/Not Resolved]
  - Cough [Recovered/Resolved]
